FAERS Safety Report 23428274 (Version 1)
Quarter: 2024Q1

REPORT INFORMATION
  Report Type: Spontaneous
  Country: CN (occurrence: CN)
  Receive Date: 20240122
  Receipt Date: 20240122
  Transmission Date: 20240409
  Serious: Yes (Life-Threatening, Other)
  Sender: FDA-Public Use
  Company Number: CN-MYLANLABS-2024M1006544

PATIENT
  Age: 76 Year
  Sex: Male
  Weight: 60 kg

DRUGS (4)
  1. CELEBREX [Suspect]
     Active Substance: CELECOXIB
     Indication: Periarthritis
     Dosage: 0.2 GRAM, BID
     Route: 048
     Dates: start: 20240117, end: 20240117
  2. CELEBREX [Suspect]
     Active Substance: CELECOXIB
     Indication: Ligament sprain
  3. EPERISONE [Suspect]
     Active Substance: EPERISONE
     Indication: Periarthritis
     Dosage: 50 MILLIGRAM, TID
     Route: 048
     Dates: start: 20240117, end: 20240117
  4. EPERISONE [Suspect]
     Active Substance: EPERISONE
     Indication: Ligament sprain

REACTIONS (1)
  - Anaphylactic shock [Recovered/Resolved]

NARRATIVE: CASE EVENT DATE: 20240117
